FAERS Safety Report 16395174 (Version 5)
Quarter: 2019Q3

REPORT INFORMATION
  Report Type: Spontaneous
  Country: JP (occurrence: JP)
  Receive Date: 20190605
  Receipt Date: 20190913
  Transmission Date: 20191004
  Serious: Yes (Hospitalization, Disabling, Other)
  Sender: FDA-Public Use
  Company Number: JP-ASTRAZENECA-2019SE81691

PATIENT
  Age: 25115 Day
  Sex: Female
  Weight: 41 kg

DRUGS (10)
  1. TAGRISSO [Suspect]
     Active Substance: OSIMERTINIB
     Indication: NON-SMALL CELL LUNG CANCER
     Route: 048
     Dates: start: 20181009, end: 20190528
  2. TALMEA [Concomitant]
     Indication: SKIN DISORDER
     Dosage: DOSE UNKNOWN
     Route: 062
     Dates: start: 20190402
  3. MIYA-BM [Concomitant]
     Active Substance: CLOSTRIDIUM BUTYRICUM SPORES STRAIN M-55
     Route: 048
     Dates: start: 20190514, end: 20190610
  4. MYSERA [Concomitant]
     Active Substance: MOMETASONE FUROATE
     Indication: SKIN DISORDER
     Dosage: DOSE UNKNOWN
     Route: 062
     Dates: start: 20181030
  5. LOXOPROFEN NA [Concomitant]
     Active Substance: LOXOPROFEN SODIUM
     Indication: PAIN
     Route: 048
     Dates: start: 20181211, end: 20181217
  6. BETAHISTINE MESILATE [Concomitant]
     Active Substance: BETAHISTINE MESILATE
     Indication: VERTIGO POSITIONAL
     Route: 048
     Dates: start: 20190217, end: 20190320
  7. BESOFTEN [Concomitant]
     Active Substance: PENTOSAN POLYSULFATE SODIUM
     Indication: SKIN DISORDER
     Dosage: DOSE UNKNOWN
     Route: 062
     Dates: start: 20181020
  8. HEPARINOID [Concomitant]
     Active Substance: CHONDROITIN SULFATE (BOVINE)
     Indication: SKIN DISORDER
     Dosage: DOSE UNKNOWN
     Route: 062
     Dates: start: 20190212
  9. SALIVEHT [Concomitant]
     Indication: SJOGREN^S SYNDROME
     Dosage: DOSE UNKNOWN FIVE TIMES DAILY
     Route: 048
     Dates: start: 20181018
  10. REBAMIPIDE [Concomitant]
     Active Substance: REBAMIPIDE
     Indication: ABDOMINAL PAIN UPPER
     Route: 048
     Dates: start: 20181211, end: 20181217

REACTIONS (5)
  - Cardiac failure congestive [Recovered/Resolved]
  - Pleural effusion [Recovered/Resolved]
  - Left ventricular dysfunction [Recovered/Resolved]
  - Malignant neoplasm progression [Unknown]
  - Pleurisy [Recovered/Resolved]

NARRATIVE: CASE EVENT DATE: 20190528
